FAERS Safety Report 8233872-3 (Version None)
Quarter: 2012Q1

REPORT INFORMATION
  Report Type: 
  Country: None (occurrence: None)
  Receive Date: 20120326
  Receipt Date: 20120321
  Transmission Date: 20120608
  Serious: Yes (Death)
  Sender: FDA-Public Use
  Company Number: 2012SP000835

PATIENT
  Age: 42 Year
  Sex: Male
  Weight: 79 kg

DRUGS (4)
  1. LATUDA [Suspect]
     Indication: AFFECTIVE DISORDER
     Route: 048
     Dates: start: 20110928, end: 20120206
  2. LATUDA [Suspect]
     Route: 048
     Dates: start: 20120206, end: 20120306
  3. LORAZEPAM [Suspect]
     Indication: ANXIETY
     Route: 048
     Dates: end: 20120306
  4. WELLBUTRIN [Suspect]
     Indication: PRODUCT USED FOR UNKNOWN INDICATION
     Route: 048
     Dates: end: 20120306

REACTIONS (1)
  - COMPLETED SUICIDE [None]
